FAERS Safety Report 14742966 (Version 2)
Quarter: 2018Q2

REPORT INFORMATION
  Report Type: Spontaneous
  Country: US (occurrence: US)
  Receive Date: 20180410
  Receipt Date: 20180424
  Transmission Date: 20180711
  Serious: No
  Sender: FDA-Public Use
  Company Number: US-ACTELION-A-US2018-170285

PATIENT
  Age: 40 Year
  Sex: Male
  Weight: 104.31 kg

DRUGS (4)
  1. UPTRAVI [Suspect]
     Active Substance: SELEXIPAG
     Dosage: UNK
     Route: 048
  2. OPSUMIT [Suspect]
     Active Substance: MACITENTAN
     Indication: PULMONARY ARTERIAL HYPERTENSION
     Dosage: 10 MG, QD
     Route: 048
  3. UPTRAVI [Suspect]
     Active Substance: SELEXIPAG
     Indication: PULMONARY ARTERIAL HYPERTENSION
     Dosage: 1600 MCG, BID
     Route: 048
  4. REMODULIN [Concomitant]
     Active Substance: TREPROSTINIL

REACTIONS (9)
  - Restless legs syndrome [Unknown]
  - Arthralgia [Unknown]
  - Disease progression [Unknown]
  - Libido decreased [Unknown]
  - Chest pain [Not Recovered/Not Resolved]
  - Nausea [Unknown]
  - Pain in jaw [Recovering/Resolving]
  - Diarrhoea [Unknown]
  - Pulmonary hypertension [Unknown]
